FAERS Safety Report 4558573-4 (Version None)
Quarter: 2005Q1

REPORT INFORMATION
  Report Type: 
  Country: None (occurrence: None)
  Receive Date: 20050121
  Receipt Date: 20031204
  Transmission Date: 20050727
  Serious: Yes (Hospitalization)
  Sender: FDA-Public Use
  Company Number: FR-ROCHE-353356

PATIENT
  Age: 64 Year
  Sex: Male
  Weight: 65 kg

DRUGS (4)
  1. PEG-INTERFERON ALFA 2A (RO 25-8310) [Suspect]
     Route: 058
     Dates: start: 20020402
  2. RIBAVIRIN [Suspect]
     Route: 048
     Dates: start: 20020402
  3. CELECTOL [Concomitant]
     Route: 048
     Dates: start: 20021015
  4. KARDEGIC [Concomitant]
     Route: 048
     Dates: start: 20021015

REACTIONS (2)
  - ACUTE CORONARY SYNDROME [None]
  - LIVER TRANSPLANT [None]
